FAERS Safety Report 12399946 (Version 4)
Quarter: 2017Q4

REPORT INFORMATION
  Report Type: Spontaneous
  Country: US (occurrence: US)
  Receive Date: 20160524
  Receipt Date: 20171004
  Transmission Date: 20180320
  Serious: Yes (Life-Threatening, Other)
  Sender: FDA-Public Use
  Company Number: US-PFIZER INC-2016270090

PATIENT
  Age: 43 Year
  Sex: Male

DRUGS (1)
  1. MANNITOL. [Suspect]
     Active Substance: MANNITOL
     Indication: INTRAOPERATIVE CARE
     Dosage: 80 G (0.7 G/KG), OVER A PERIOD OF 20 MINUTES
     Route: 042

REACTIONS (2)
  - Hyperkalaemia [Recovered/Resolved]
  - Cardiac arrest [Recovered/Resolved]
